FAERS Safety Report 8026618-5 (Version None)
Quarter: 2012Q1

REPORT INFORMATION
  Report Type: 
  Country: None (occurrence: None)
  Receive Date: 20120106
  Receipt Date: 20111229
  Transmission Date: 20120608
  Serious: No
  Sender: FDA-Public Use
  Company Number: US-BIOGENIDEC-2011BI048083

PATIENT
  Age: 36 Year
  Sex: Female

DRUGS (3)
  1. COPAXONE [Concomitant]
  2. PEPSID [Concomitant]
     Indication: GASTRIC DISORDER
  3. TYSABRI [Suspect]
     Indication: MULTIPLE SCLEROSIS
     Route: 042
     Dates: start: 20111219

REACTIONS (17)
  - MYALGIA [None]
  - FEELING HOT [None]
  - PNEUMONIA [None]
  - HEADACHE [None]
  - EYE SWELLING [None]
  - CHEST PAIN [None]
  - EYELID OEDEMA [None]
  - MOBILITY DECREASED [None]
  - INFECTION [None]
  - JOINT SWELLING [None]
  - VISUAL IMPAIRMENT [None]
  - EYE INFECTION [None]
  - VISION BLURRED [None]
  - PAIN [None]
  - DYSPEPSIA [None]
  - COUGH [None]
  - ARTHRALGIA [None]
